FAERS Safety Report 7098075-7 (Version None)
Quarter: 2010Q4

REPORT INFORMATION
  Report Type: 
  Country: None (occurrence: None)
  Receive Date: 20101112
  Receipt Date: 20100113
  Transmission Date: 20110411
  Serious: No
  Sender: FDA-Public Use
  Company Number: US-KINGPHARMUSA00001-K201000044

PATIENT
  Age: 64 Year
  Sex: Female
  Weight: 70.295 kg

DRUGS (6)
  1. SKELAXIN [Suspect]
     Indication: TEMPOROMANDIBULAR JOINT SYNDROME
     Dosage: 800 MG, QD PRN
     Route: 048
     Dates: end: 20090101
  2. SULFACETAMIDE SODIUM [Suspect]
     Indication: ROSACEA
     Dosage: UNK
     Route: 061
     Dates: start: 20091201, end: 20090101
  3. SULFACETAMIDE SODIUM [Suspect]
     Indication: ECZEMA
  4. MSM WITH GLUCOSAMINE [Concomitant]
     Dosage: 300 MG, UNK
  5. MIDRIN [Concomitant]
     Indication: HEADACHE
  6. MIDRIN [Concomitant]
     Indication: TEMPOROMANDIBULAR JOINT SYNDROME

REACTIONS (3)
  - PRURITUS [None]
  - RASH GENERALISED [None]
  - SWELLING FACE [None]
